FAERS Safety Report 15360806 (Version 1)
Quarter: 2018Q3

REPORT INFORMATION
  Report Type: Report from Study
  Country: KR (occurrence: KR)
  Receive Date: 20180907
  Receipt Date: 20180907
  Transmission Date: 20181010
  Serious: Yes (Hospitalization, Other)
  Sender: FDA-Public Use
  Company Number: KR-MYLANLABS-2018M1064928

PATIENT
  Age: 56 Year
  Sex: Female

DRUGS (9)
  1. PREDNISOLONE. [Suspect]
     Active Substance: PREDNISOLONE
     Indication: ANTIINFLAMMATORY THERAPY
     Dosage: 1% TOPICAL PREDNISOLONE ACETATE FOUR TIMES DAILY
     Route: 061
  2. TRIAMCINOLONE [Suspect]
     Active Substance: TRIAMCINOLONE
     Indication: ANTIINFLAMMATORY THERAPY
     Dosage: RECEIVED TOTAL OF FIVE INJECTIONS
     Route: 057
  3. TACROLIMUS MONOHYDRATE [Concomitant]
     Active Substance: TACROLIMUS
     Indication: NECROTISING SCLERITIS
     Route: 047
  4. MITOMYCIN. [Suspect]
     Active Substance: MITOMYCIN
     Indication: PRODUCT USED FOR UNKNOWN INDICATION
     Route: 061
  5. NAPROXEN. [Concomitant]
     Active Substance: NAPROXEN
     Indication: ANTIINFLAMMATORY THERAPY
     Route: 048
  6. SOLU?MEDROL [Suspect]
     Active Substance: METHYLPREDNISOLONE SODIUM SUCCINATE
     Indication: NECROTISING SCLERITIS
     Dosage: THE WOMAN RECEIVED INTRAVENOUS STEROID PULSE WITH METHYLPREDNISOLONE 1000MG DAILY FOR 3 DAYS
     Route: 042
  7. SOLU?MEDROL [Suspect]
     Active Substance: METHYLPREDNISOLONE SODIUM SUCCINATE
     Indication: CONDITION AGGRAVATED
  8. LEVOFLOXACIN. [Concomitant]
     Active Substance: LEVOFLOXACIN
     Indication: NECROTISING SCLERITIS
     Dosage: FOUR TIMES DAILY
     Route: 061
  9. TRIAMCINOLONE [Suspect]
     Active Substance: TRIAMCINOLONE
     Indication: ANTIINFLAMMATORY THERAPY
     Route: 048

REACTIONS (3)
  - Necrotising scleritis [Recovering/Resolving]
  - Cataract [Unknown]
  - Condition aggravated [Recovering/Resolving]
